FAERS Safety Report 5101398-1 (Version None)
Quarter: 2006Q3

REPORT INFORMATION
  Report Type: 
  Country: None (occurrence: None)
  Receive Date: 20060911
  Receipt Date: 20060905
  Transmission Date: 20061208
  Serious: Yes (Hospitalization)
  Sender: FDA-Public Use
  Company Number: US-GLAXOSMITHKLINE-A0619045A

PATIENT
  Age: 56 Year
  Sex: Male
  Weight: 108 kg

DRUGS (5)
  1. DUTASTERIDE [Suspect]
     Dosage: .5MG PER DAY
     Route: 048
     Dates: start: 20060808
  2. IBUPROFEN [Concomitant]
     Indication: PAIN
     Dosage: 800MG AS REQUIRED
     Route: 048
     Dates: start: 20041109
  3. OMEPRAZOLE [Concomitant]
     Indication: GASTRITIS
     Dosage: 20MG TWICE PER DAY
     Route: 048
     Dates: start: 20041006
  4. ASPIRIN [Concomitant]
     Indication: ANTICOAGULANT THERAPY
     Dosage: 81MG PER DAY
     Route: 048
     Dates: start: 20001001
  5. TOPIRAMATE [Concomitant]
     Route: 048
     Dates: start: 20060822

REACTIONS (5)
  - CHEST PAIN [None]
  - DYSPNOEA [None]
  - DYSPNOEA EXERTIONAL [None]
  - NAUSEA [None]
  - TINNITUS [None]
